FAERS Safety Report 8771883 (Version 2)
Quarter: 2012Q4

REPORT INFORMATION
  Report Type: Report from Study
  Country: JP (occurrence: JP)
  Receive Date: 20120907
  Receipt Date: 20120907
  Transmission Date: 20130627
  Serious: Yes (Other)
  Sender: FDA-Public Use
  Company Number: JP-CELGENEUS-087-21880-11030835

PATIENT
  Age: 70 Year
  Sex: Male

DRUGS (10)
  1. REVLIMID [Suspect]
     Indication: MULTIPLE MYELOMA
     Dosage: 25 Milligram
     Route: 048
     Dates: start: 20100826, end: 20100915
  2. REVLIMID [Suspect]
     Dosage: 25 Milligram
     Route: 048
     Dates: start: 20100930, end: 20101020
  3. REVLIMID [Suspect]
     Dosage: 25 Milligram
     Route: 048
     Dates: start: 20101028, end: 20101124
  4. REVLIMID [Suspect]
     Dosage: 25 Milligram
     Route: 048
     Dates: start: 20101125, end: 20101215
  5. REVLIMID [Suspect]
     Dosage: 25 Milligram
     Route: 048
     Dates: start: 20110106, end: 20110126
  6. REVLIMID [Suspect]
     Dosage: 25 Milligram
     Route: 048
     Dates: start: 20110203, end: 20110223
  7. LENADEX [Suspect]
     Indication: MULTIPLE MYELOMA
     Dosage: 40 Milligram
     Route: 048
     Dates: start: 20100930, end: 20101125
  8. LENADEX [Suspect]
     Dosage: 40 Milligram
     Route: 048
     Dates: start: 20101125, end: 20110301
  9. DUROTEP [Suspect]
     Indication: PAIN
     Dosage: 2.1 Milligram
     Route: 062
     Dates: start: 20110112, end: 20110114
  10. DEXAMETHASONE [Concomitant]
     Indication: MULTIPLE MYELOMA
     Dosage: 40 Milligram
     Route: 048
     Dates: start: 20100826, end: 20100916

REACTIONS (2)
  - Urinary retention [Recovered/Resolved]
  - Neuropathy peripheral [Not Recovered/Not Resolved]
